FAERS Safety Report 13158973 (Version 2)
Quarter: 2017Q1

REPORT INFORMATION
  Report Type: Spontaneous
  Country: US (occurrence: US)
  Receive Date: 20170127
  Receipt Date: 20170323
  Transmission Date: 20170428
  Serious: No
  Sender: FDA-Public Use
  Company Number: US-PFIZER INC-2017031028

PATIENT
  Age: 89 Year
  Sex: Female
  Weight: 68 kg

DRUGS (5)
  1. LISINOPRIL. [Concomitant]
     Active Substance: LISINOPRIL
     Dosage: 20 MG, DAILY, ^AT NIGHT TIME^
  2. IBRANCE [Suspect]
     Active Substance: PALBOCICLIB
     Indication: ADRENAL GLAND CANCER
     Dosage: 125 MG, CYCLIC, ^ ^ONE CAPSULE AT LUNCH TIME FOR THREE WEEKS AND THEN FOUR WEEK GAP OF THREE WEEKS^
     Route: 048
     Dates: start: 201603
  3. IBRANCE [Suspect]
     Active Substance: PALBOCICLIB
     Indication: BREAST CANCER
     Dosage: 125 MG, UNK
     Route: 048
     Dates: start: 201609
  4. NORCO [Concomitant]
     Active Substance: ACETAMINOPHEN\HYDROCODONE BITARTRATE
     Dosage: 325 MG, 1X/DAY
     Route: 048
  5. ESCITALOPRAM [Concomitant]
     Active Substance: ESCITALOPRAM OXALATE

REACTIONS (4)
  - Condition aggravated [Unknown]
  - Lymphoedema [Unknown]
  - Pain [Unknown]
  - Oedema [Unknown]

NARRATIVE: CASE EVENT DATE: 2016
